FAERS Safety Report 5758893-1 (Version None)
Quarter: 2008Q2

REPORT INFORMATION
  Report Type: 
  Country: None (occurrence: None)
  Receive Date: 20080604
  Receipt Date: 20080527
  Transmission Date: 20081010
  Serious: Yes (Death)
  Sender: FDA-Public Use
  Company Number: PHHY2008GB07001

PATIENT
  Sex: Male

DRUGS (2)
  1. ZOMETA [Suspect]
     Indication: PROSTATE CANCER
     Dosage: 4 MG, QMO
     Route: 042
  2. ACETAMINOPHEN [Concomitant]

REACTIONS (4)
  - ACUTE PHASE REACTION [None]
  - DEATH [None]
  - INFLUENZA LIKE ILLNESS [None]
  - MALAISE [None]
